FAERS Safety Report 17590604 (Version 1)
Quarter: 2020Q1

REPORT INFORMATION
  Report Type: Report from Study
  Country: CO (occurrence: CO)
  Receive Date: 20200327
  Receipt Date: 20200327
  Transmission Date: 20200409
  Serious: Yes (Life-Threatening, Hospitalization, Other)
  Sender: FDA-Public Use
  Company Number: CO-ROCHE-2513651

PATIENT
  Sex: Male

DRUGS (1)
  1. AVASTIN [Suspect]
     Active Substance: BEVACIZUMAB
     Indication: COLON CANCER
     Route: 065

REACTIONS (7)
  - Immunodeficiency [Recovered/Resolved]
  - Feeling abnormal [Unknown]
  - Influenza [Recovered/Resolved]
  - Bronchitis [Unknown]
  - Apparent death [Unknown]
  - Malaise [Unknown]
  - Gastric ulcer [Unknown]
